FAERS Safety Report 17026838 (Version 1)
Quarter: 2019Q4

REPORT INFORMATION
  Report Type: Spontaneous
  Country: FR (occurrence: FR)
  Receive Date: 20191113
  Receipt Date: 20191113
  Transmission Date: 20200122
  Serious: Yes (Other)
  Sender: FDA-Public Use
  Company Number: FR-MYLANLABS-2019M1107825

PATIENT
  Age: 83 Year
  Sex: Female

DRUGS (8)
  1. HALDOL [Concomitant]
     Active Substance: HALOPERIDOL
     Dosage: 0.5 DOSAGE FORM, QD
     Route: 048
     Dates: end: 20190320
  2. METFORMINE ARROW [Concomitant]
     Active Substance: METFORMIN HYDROCHLORIDE
     Dosage: 2 GRAM, QD
     Route: 048
  3. AMLODIPINE [Concomitant]
     Active Substance: AMLODIPINE BESYLATE
     Dosage: 5 MILLIGRAM, QD
     Route: 048
  4. GALVUS [Concomitant]
     Active Substance: VILDAGLIPTIN
     Dosage: 50 MILLIGRAM, QD
     Route: 048
  5. PROPRANOLOL [Concomitant]
     Active Substance: PROPRANOLOL HYDROCHLORIDE
     Dosage: 120 MILLIGRAM, QD
     Route: 048
  6. LEPONEX 25 MG [Suspect]
     Active Substance: CLOZAPINE
     Indication: HALLUCINATION
     Dosage: 50 MILLIGRAM, QD
     Route: 048
     Dates: start: 20190318
  7. KARDEGIC [Concomitant]
     Active Substance: ASPIRIN DL-LYSINE
     Dosage: 1 DOSAGE FORM, QD
     Route: 048
  8. SMECTA [Concomitant]
     Active Substance: MONTMORILLONITE
     Dosage: 3 DOSAGE FORM, QD
     Route: 048

REACTIONS (2)
  - Fall [Recovered/Resolved]
  - Product prescribing error [Recovered/Resolved]

NARRATIVE: CASE EVENT DATE: 20190318
